FAERS Safety Report 6931902-X (Version None)
Quarter: 2010Q3

REPORT INFORMATION
  Report Type: 
  Country: None (occurrence: None)
  Receive Date: 20100819
  Receipt Date: 20100810
  Transmission Date: 20110219
  Serious: Yes (Other)
  Sender: FDA-Public Use
  Company Number: US-PFIZER INC-2010101227

PATIENT
  Sex: Female
  Weight: 88.4 kg

DRUGS (7)
  1. LIPITOR [Suspect]
     Indication: CORONARY ARTERY DISEASE
     Dosage: 20 MG, DAILY
     Route: 048
     Dates: end: 20100807
  2. COPAXONE [Concomitant]
     Dosage: UNK
  3. BISOPROLOL [Concomitant]
     Dosage: 0.25 MG, UNK
  4. DIOVAN [Concomitant]
     Dosage: UNK
     Dates: start: 20100510
  5. LEVOTHYROXINE [Concomitant]
     Dosage: 1.5 MG, UNK
  6. ASPIRIN [Concomitant]
     Dosage: 81 MG, 1X/DAY
  7. PROVIGIL [Concomitant]
     Dosage: UNK

REACTIONS (3)
  - ARTHRALGIA [None]
  - MONONUCLEOSIS SYNDROME [None]
  - PAIN IN EXTREMITY [None]
